FAERS Safety Report 11155106 (Version 3)
Quarter: 2015Q2

REPORT INFORMATION
  Report Type: Spontaneous
  Country: HR (occurrence: HR)
  Receive Date: 20150602
  Receipt Date: 20150618
  Transmission Date: 20150821
  Serious: Yes (Other)
  Sender: FDA-Public Use
  Company Number: HR-JNJFOC-20150519047

PATIENT
  Age: 27 Year
  Sex: Male

DRUGS (1)
  1. REMICADE [Suspect]
     Active Substance: INFLIXIMAB
     Indication: ANKYLOSING SPONDYLITIS
     Dosage: REPORTED AS LAST DOSE OF INFLIXIMAB
     Route: 042
     Dates: end: 20150511

REACTIONS (5)
  - Jaw fracture [Recovering/Resolving]
  - Nausea [Recovering/Resolving]
  - Muscular weakness [Recovering/Resolving]
  - Face injury [Recovering/Resolving]
  - Post lumbar puncture syndrome [Recovering/Resolving]

NARRATIVE: CASE EVENT DATE: 201505
